FAERS Safety Report 16795584 (Version 1)
Quarter: 2019Q3

REPORT INFORMATION
  Report Type: Other
  Country: US (occurrence: US)
  Receive Date: 20190911
  Receipt Date: 20190911
  Transmission Date: 20191005
  Serious: Yes (Hospitalization)
  Sender: FDA-Public Use
  Company Number: US-STANDARD HOMEOPATHIC COMPANY-2074271

PATIENT
  Age: 72 Year
  Sex: Female

DRUGS (4)
  1. HYLANDS RESTFUL LEGS [Suspect]
     Active Substance: HOMEOPATHICS
     Indication: PARAESTHESIA
     Route: 048
     Dates: start: 20180824, end: 20190824
  2. HYLANDS RESTFUL LEGS [Suspect]
     Active Substance: HOMEOPATHICS
     Indication: AGITATION
     Route: 048
     Dates: start: 20180824, end: 20190824
  3. HYLANDS RESTFUL LEGS [Suspect]
     Active Substance: HOMEOPATHICS
     Indication: PRURITUS
     Route: 048
     Dates: start: 20180824, end: 20190824
  4. LISINOPRIL. [Suspect]
     Active Substance: LISINOPRIL
     Route: 048

REACTIONS (1)
  - Loss of consciousness [Recovered/Resolved]

NARRATIVE: CASE EVENT DATE: 20190824
